FAERS Safety Report 15083659 (Version 2)
Quarter: 2018Q3

REPORT INFORMATION
  Report Type: Spontaneous
  Country: US (occurrence: US)
  Receive Date: 20180628
  Receipt Date: 20180927
  Transmission Date: 20181010
  Serious: No
  Sender: FDA-Public Use
  Company Number: US-CLOVIS ONCOLOGY-CLO-2018-000640

PATIENT
  Age: 61 Year
  Sex: Female

DRUGS (3)
  1. RUBRACA [Suspect]
     Active Substance: RUCAPARIB CAMSYLATE
     Dosage: 500 MG, BID
     Route: 048
     Dates: start: 2018, end: 20180710
  2. RUBRACA [Suspect]
     Active Substance: RUCAPARIB CAMSYLATE
     Dosage: 500 MG, BID
     Route: 048
     Dates: start: 20180517, end: 20180918
  3. RUBRACA [Suspect]
     Active Substance: RUCAPARIB CAMSYLATE
     Indication: OVARIAN CANCER
     Dosage: 600 MG, BID
     Route: 065
     Dates: start: 20180517, end: 2018

REACTIONS (11)
  - Adverse event [Not Recovered/Not Resolved]
  - Musculoskeletal chest pain [Not Recovered/Not Resolved]
  - Chills [Not Recovered/Not Resolved]
  - Musculoskeletal stiffness [Not Recovered/Not Resolved]
  - Pneumonia [Recovered/Resolved]
  - Infection [Not Recovered/Not Resolved]
  - Pain [Recovered/Resolved]
  - Rash [Recovered/Resolved]
  - Influenza like illness [Not Recovered/Not Resolved]
  - Diarrhoea [Not Recovered/Not Resolved]
  - Pyrexia [Not Recovered/Not Resolved]

NARRATIVE: CASE EVENT DATE: 2018
